FAERS Safety Report 21870710 (Version 3)
Quarter: 2023Q1

REPORT INFORMATION
  Report Type: Report from Study
  Country: BR (occurrence: BR)
  Receive Date: 20230117
  Receipt Date: 20230223
  Transmission Date: 20230417
  Serious: Yes (Other)
  Sender: FDA-Public Use
  Company Number: BR-002147023-NVSC2023BR008436

PATIENT
  Age: 69 Year
  Sex: Female

DRUGS (2)
  1. BRINZOLAMIDE\TIMOLOL MALEATE [Suspect]
     Active Substance: BRINZOLAMIDE\TIMOLOL MALEATE
     Indication: Ocular discomfort
     Dosage: 5 ML (SEPTEMBER (YEAR NOT CONFIRMED).
     Route: 047
  2. BRINZOLAMIDE\TIMOLOL MALEATE [Suspect]
     Active Substance: BRINZOLAMIDE\TIMOLOL MALEATE
     Dosage: UNK
     Route: 047
     Dates: start: 202211, end: 202212

REACTIONS (11)
  - Ophthalmic herpes zoster [Unknown]
  - Immunodeficiency [Unknown]
  - Visual impairment [Unknown]
  - COVID-19 [Unknown]
  - Stress [Unknown]
  - Eye pain [Unknown]
  - Malaise [Unknown]
  - Corneal lesion [Recovered/Resolved]
  - Drug intolerance [Unknown]
  - Corneal lesion [Unknown]
  - Corneal disorder [Unknown]

NARRATIVE: CASE EVENT DATE: 20220601
